FAERS Safety Report 8872647 (Version 1)
Quarter: 2012Q4

REPORT INFORMATION
  Report Type: Report from Study
  Country: BR (occurrence: BR)
  Receive Date: 20121030
  Receipt Date: 20121030
  Transmission Date: 20130627
  Serious: Yes (Other)
  Sender: FDA-Public Use
  Company Number: BR-ROCHE-1150230

PATIENT
  Age: 58 Year
  Sex: Male
  Weight: 81 kg

DRUGS (2)
  1. BEVACIZUMAB [Suspect]
     Indication: COLON CANCER
     Dosage: 4 infusions
     Route: 065
     Dates: start: 20120806, end: 20121026
  2. IRINOTECAN [Concomitant]
     Dosage: 4 cycles received
     Route: 065
     Dates: start: 20120806, end: 20121026

REACTIONS (1)
  - Disease progression [Unknown]
